FAERS Safety Report 19115400 (Version 2)
Quarter: 2021Q2

REPORT INFORMATION
  Report Type: Spontaneous
  Country: GB (occurrence: GB)
  Receive Date: 20210409
  Receipt Date: 20210422
  Transmission Date: 20210717
  Serious: Yes (Life-Threatening)
  Sender: FDA-Public Use
  Company Number: GB-BAYER-2021-116519

PATIENT
  Age: 45 Year
  Sex: Female

DRUGS (5)
  1. DIAZEPAM. [Concomitant]
     Active Substance: DIAZEPAM
  2. ZAPAIN [Concomitant]
     Active Substance: ACETAMINOPHEN\CODEINE PHOSPHATE
  3. PREGABALIN. [Concomitant]
     Active Substance: PREGABALIN
  4. NAPROXEN. [Concomitant]
     Active Substance: NAPROXEN
  5. MIRENA [Suspect]
     Active Substance: LEVONORGESTREL
     Dosage: 20 ?G PER DAY, CONTINUOUSLY
     Route: 015
     Dates: start: 20091103, end: 20210330

REACTIONS (8)
  - Visual impairment [Unknown]
  - Drug ineffective [Unknown]
  - Streptococcal infection [Recovered/Resolved]
  - Pain [Unknown]
  - Complication of device insertion [Recovered/Resolved]
  - Device use issue [Recovered/Resolved]
  - Ectopic pregnancy with contraceptive device [Unknown]
  - Tooth loss [Unknown]

NARRATIVE: CASE EVENT DATE: 20091103
